FAERS Safety Report 6836022-0 (Version None)
Quarter: 2010Q3

REPORT INFORMATION
  Report Type: 
  Country: None (occurrence: None)
  Receive Date: 20100712
  Receipt Date: 20100712
  Transmission Date: 20110219
  Serious: Yes (Hospitalization)
  Sender: FDA-Public Use
  Company Number: None

PATIENT
  Age: 45 Year
  Sex: Female
  Weight: 65.5 kg

DRUGS (9)
  1. DOXORUBICIN HCL [Suspect]
     Indication: BREAST CANCER
     Dosage: DOXORUBICIN 50MG/M2 ONCE IV PUSH THROUGH RUNNING IV OF NS
     Route: 042
     Dates: start: 20100701
  2. CYCLOPHOSPHAMIDE [Suspect]
     Indication: BREAST CANCER
     Dosage: CYCLOPHOSPHAMIDE ONCE IV INFUSION IN 250 ML NS
     Route: 042
     Dates: start: 20100701
  3. ACETAMINOPHEN [Concomitant]
  4. LANSOPRAZOLE [Concomitant]
  5. PROCHLORPERAZINE [Concomitant]
  6. CEPHALEXIN [Concomitant]
  7. LORAZEPAM [Concomitant]
  8. SODIUM CHLORIDE [Concomitant]
  9. PEGFILGRASTIM [Concomitant]

REACTIONS (7)
  - COUGH [None]
  - DYSPNOEA [None]
  - FATIGUE [None]
  - MYALGIA [None]
  - PANCYTOPENIA [None]
  - PYREXIA [None]
  - SINUS TACHYCARDIA [None]
